FAERS Safety Report 5606146-4 (Version None)
Quarter: 2008Q1

REPORT INFORMATION
  Report Type: 
  Country: None (occurrence: None)
  Receive Date: 20080129
  Receipt Date: 20070525
  Transmission Date: 20080703
  Serious: No
  Sender: FDA-Public Use
  Company Number: A0653042A

PATIENT
  Age: 52 Year
  Sex: Female

DRUGS (2)
  1. MEPRON [Suspect]
     Indication: DRUG USE FOR UNKNOWN INDICATION
     Dosage: 750MGML TWICE PER DAY
     Route: 048
  2. ANTIBIOTICS [Concomitant]

REACTIONS (2)
  - BABESIOSIS [None]
  - PHARMACEUTICAL PRODUCT COMPLAINT [None]
